FAERS Safety Report 9549586 (Version 2)
Quarter: 2013Q3

REPORT INFORMATION
  Report Type: Report from Study
  Country: DE (occurrence: DE)
  Receive Date: 20130924
  Receipt Date: 20130924
  Transmission Date: 20140515
  Serious: Yes (Hospitalization)
  Sender: FDA-Public Use
  Company Number: DE-ABBVIE-13P-062-1036451-00

PATIENT
  Age: 62 Year
  Sex: Female

DRUGS (11)
  1. HUMIRA [Suspect]
     Indication: PSORIASIS
     Route: 058
     Dates: start: 20110703, end: 201111
  2. HUMIRA [Suspect]
     Route: 058
     Dates: start: 20121205, end: 20130318
  3. DALTEPARIN [Concomitant]
     Indication: THROMBOSIS PROPHYLAXIS
  4. DAIVOBET [Concomitant]
     Indication: PSORIASIS
  5. EUCREAS [Concomitant]
     Indication: DIABETES MELLITUS
     Dates: end: 201211
  6. EUCREAS [Concomitant]
     Dates: start: 20121201
  7. ACTRAPHANE [Concomitant]
     Indication: DIABETES MELLITUS
     Dosage: 30 IU
     Dates: start: 201211, end: 20121130
  8. AMLODIPIN [Concomitant]
     Indication: PRODUCT USED FOR UNKNOWN INDICATION
     Route: 048
  9. RAMIPRIL [Concomitant]
     Indication: PRODUCT USED FOR UNKNOWN INDICATION
     Route: 048
  10. PANTOZOL [Concomitant]
     Indication: PRODUCT USED FOR UNKNOWN INDICATION
     Route: 048
  11. OPIPRAMOL [Concomitant]
     Indication: PRODUCT USED FOR UNKNOWN INDICATION
     Route: 048

REACTIONS (5)
  - Blood glucose abnormal [Recovered/Resolved]
  - Erysipelas [Recovered/Resolved]
  - Psoriasis [Unknown]
  - Cystitis [Unknown]
  - General physical health deterioration [Unknown]
